FAERS Safety Report 7531611-2 (Version None)
Quarter: 2011Q2

REPORT INFORMATION
  Report Type: 
  Country: None (occurrence: None)
  Receive Date: 20110608
  Receipt Date: 20090930
  Transmission Date: 20111010
  Serious: Yes (Death, Other)
  Sender: FDA-Public Use
  Company Number: US-BAYER-200934887NA

PATIENT
  Age: 79 Year
  Sex: Female
  Weight: 53.515 kg

DRUGS (13)
  1. LASIX [Concomitant]
     Indication: PRODUCT USED FOR UNKNOWN INDICATION
     Dosage: 40 MG, QD
     Route: 048
     Dates: start: 20051010
  2. DIOVAN [Concomitant]
  3. IMDUR [Concomitant]
     Indication: PRODUCT USED FOR UNKNOWN INDICATION
     Dosage: 30 MG, QD
     Dates: start: 20051010
  4. ATACAND [Concomitant]
  5. COREG [Concomitant]
     Indication: PRODUCT USED FOR UNKNOWN INDICATION
     Dosage: 3.325 MG, QD
     Route: 048
     Dates: start: 20051010
  6. TRASYLOL [Suspect]
     Indication: MITRAL VALVE REPLACEMENT
     Route: 042
     Dates: start: 20060129
  7. TRASYLOL [Suspect]
     Indication: TRICUSPID VALVE REPAIR
  8. ZESTRIL [Concomitant]
     Indication: PRODUCT USED FOR UNKNOWN INDICATION
     Dosage: 10 MG, QD
     Route: 048
     Dates: start: 20050808
  9. ZESTRIL [Concomitant]
     Dosage: 5 MG, QD
     Route: 048
  10. ALTACE [Concomitant]
     Indication: PRODUCT USED FOR UNKNOWN INDICATION
     Dosage: 5 MG, QD
     Route: 048
     Dates: start: 20051010
  11. COREG [Concomitant]
     Dosage: 3.125 MG, QD
  12. ACETYLSALICYLIC ACID SRT [Concomitant]
     Dosage: 325 MG, UNK
     Route: 048
     Dates: start: 20051010
  13. PREVACID [Concomitant]
     Indication: PRODUCT USED FOR UNKNOWN INDICATION
     Dosage: 30 MG, QD
     Route: 048
     Dates: start: 20051010

REACTIONS (12)
  - EMOTIONAL DISTRESS [None]
  - PAIN [None]
  - RENAL INJURY [None]
  - STRESS [None]
  - RENAL FAILURE [None]
  - ANXIETY [None]
  - RENAL IMPAIRMENT [None]
  - INJURY [None]
  - MULTI-ORGAN FAILURE [None]
  - UNEVALUABLE EVENT [None]
  - DEATH [None]
  - FEAR [None]
